FAERS Safety Report 5456564-2 (Version None)
Quarter: 2007Q3

REPORT INFORMATION
  Report Type: 
  Country: None (occurrence: None)
  Receive Date: 20070918
  Receipt Date: 20070907
  Transmission Date: 20080115
  Serious: Yes (Other)
  Sender: FDA-Public Use
  Company Number: US-KINGPHARMUSA00001-K200701156

PATIENT

DRUGS (6)
  1. ALTACE [Suspect]
     Indication: HYPERTENSION
     Dosage: 10 MG, QD
     Route: 048
     Dates: start: 20070305, end: 20070423
  2. AMLODIPINE [Concomitant]
     Dosage: 10 MG, UNK
     Route: 048
  3. BISOPROLOL [Concomitant]
     Dosage: 5 MG, UNK
     Route: 048
  4. LATANOPROST [Concomitant]
     Route: 061
  5. PERINDOPRIL ERBUMINE [Concomitant]
     Dosage: 4 MG, UNK
     Route: 048
  6. SIMVASTATIN [Concomitant]
     Dosage: 20 MG, UNK
     Route: 048

REACTIONS (1)
  - ALOPECIA [None]
